FAERS Safety Report 4758055-0 (Version None)
Quarter: 2005Q3

REPORT INFORMATION
  Report Type: 
  Country: None (occurrence: None)
  Receive Date: 20050830
  Receipt Date: 20050816
  Transmission Date: 20060218
  Serious: Yes (Other)
  Sender: FDA-Public Use
  Company Number: 2005BI011873

PATIENT
  Age: 44 Year
  Sex: Female
  Weight: 58.0604 kg

DRUGS (6)
  1. AVONEX [Suspect]
     Indication: MULTIPLE SCLEROSIS
     Dosage: 30 UG;QW;IM
     Route: 030
     Dates: start: 19990501, end: 20030801
  2. AVONEX [Suspect]
     Indication: MULTIPLE SCLEROSIS
     Dosage: 30 UG;QW;IM
     Route: 030
     Dates: start: 20030801, end: 20030101
  3. AVONEX [Suspect]
     Indication: MULTIPLE SCLEROSIS
     Dosage: 30 UG;QW;IM
     Route: 030
     Dates: start: 20030101
  4. BACLOFEN [Concomitant]
  5. WELLBUTRIN [Concomitant]
  6. PROZAC [Concomitant]

REACTIONS (6)
  - ARTHROPOD BITE [None]
  - DIPLOPIA [None]
  - FATIGUE [None]
  - INFLUENZA LIKE ILLNESS [None]
  - MALIGNANT MELANOMA [None]
  - MUSCLE SPASTICITY [None]
